FAERS Safety Report 23784330 (Version 1)
Quarter: 2024Q2

REPORT INFORMATION
  Report Type: Spontaneous
  Country: US (occurrence: US)
  Receive Date: 20240425
  Receipt Date: 20240425
  Transmission Date: 20240716
  Serious: No
  Sender: FDA-Public Use
  Company Number: US-Kiniksa Pharmaceuticals Ltd.-2024KPU000059

PATIENT
  Age: 59 Year
  Sex: Female

DRUGS (5)
  1. ARCALYST [Suspect]
     Active Substance: RILONACEPT
     Indication: Pericarditis
     Route: 058
     Dates: start: 20231204, end: 20240101
  2. ARCALYST [Suspect]
     Active Substance: RILONACEPT
     Indication: Pericarditis
  3. PREDNISONE [Concomitant]
     Active Substance: PREDNISONE
     Indication: Pericarditis
  4. PREDNISONE [Concomitant]
     Active Substance: PREDNISONE
  5. COLCHICINE [Concomitant]
     Active Substance: COLCHICINE
     Indication: Pericarditis

REACTIONS (12)
  - White blood cells urine positive [Recovered/Resolved]
  - Dysuria [Recovered/Resolved]
  - Nasal congestion [Recovered/Resolved]
  - Back pain [Recovered/Resolved]
  - Injection site erythema [Recovered/Resolved]
  - Injection site swelling [Recovered/Resolved]
  - Injection site mass [Recovered/Resolved]
  - Injection site warmth [Recovered/Resolved]
  - Injection site discolouration [Recovering/Resolving]
  - Upper respiratory tract infection [Recovered/Resolved]
  - Injection site pruritus [Recovered/Resolved]
  - Diarrhoea [Recovered/Resolved]

NARRATIVE: CASE EVENT DATE: 20231204
